FAERS Safety Report 4420108-4 (Version None)
Quarter: 2004Q2

REPORT INFORMATION
  Report Type: 
  Country: None (occurrence: None)
  Receive Date: 20040622
  Receipt Date: 20030707
  Transmission Date: 20050107
  Serious: Yes (Life-Threatening, Hospitalization)
  Sender: FDA-Public Use
  Company Number: 341950

PATIENT
  Age: 63 Year
  Sex: Female
  Weight: 53.5 kg

DRUGS (4)
  1. XELODA [Suspect]
     Dosage: 4000 MG DAILY ORAL
     Route: 048
     Dates: start: 20030627
  2. HEPARIN [Concomitant]
  3. NITROGLYCERIN [Concomitant]
  4. MULTIPLE OTHER MEDICATIONS (GENERIC COMPONENT (S) [Concomitant]

REACTIONS (4)
  - ANGINA PECTORIS [None]
  - DYSPNOEA [None]
  - NAUSEA [None]
  - STOMATITIS [None]
